FAERS Safety Report 23979101 (Version 2)
Quarter: 2024Q4

REPORT INFORMATION
  Report Type: Report from Study
  Country: US (occurrence: US)
  Receive Date: 20240615
  Receipt Date: 20241013
  Transmission Date: 20250114
  Serious: Yes (Other)
  Sender: ABBVIE
  Company Number: US-ABBVIE-5799571

PATIENT
  Age: 69 Year
  Sex: Male

DRUGS (2)
  1. HUMIRA [Suspect]
     Active Substance: ADALIMUMAB
     Indication: Psoriatic arthropathy
     Route: 058
     Dates: start: 20180214
  2. HUMIRA [Suspect]
     Active Substance: ADALIMUMAB
     Route: 058
     Dates: start: 2021

REACTIONS (5)
  - Gallbladder cancer stage IV [Not Recovered/Not Resolved]
  - Small intestinal resection [Unknown]
  - Surgery [Unknown]
  - Urinary bladder haemorrhage [Unknown]
  - Memory impairment [Unknown]

NARRATIVE: CASE EVENT DATE: 20240301
